FAERS Safety Report 6195518-8 (Version None)
Quarter: 2009Q2

REPORT INFORMATION
  Report Type: 
  Country: None (occurrence: None)
  Receive Date: 20090519
  Receipt Date: 20090511
  Transmission Date: 20091009
  Serious: Yes (Other)
  Sender: FDA-Public Use
  Company Number: PHHY2009BR18573

PATIENT
  Sex: Female
  Weight: 38.5 kg

DRUGS (12)
  1. DIOVAN [Suspect]
     Indication: HYPERTENSION
     Dosage: UNK
     Dates: start: 20090427
  2. MAREVAN ^BRITISH DRUG HOUSES^ [Concomitant]
     Indication: BLOOD DISORDER
     Dosage: ? TABLET ON TUESDAY AND ON THURDAY AND ? TABLET (5 MG) IN THE OTHER DAYS
     Route: 048
  3. AAS [Concomitant]
     Indication: BLOOD DISORDER
     Dosage: 100 MG, QD
     Route: 048
     Dates: start: 19990101
  4. OMEPRAZOLE [Concomitant]
     Dosage: 20 MG, BID3SDO
     Route: 048
     Dates: start: 19990101
  5. ALENDRONATE SODIUM [Concomitant]
     Indication: OSTEOPOROSIS
     Dosage: 1 DF, QW
  6. LIPITOR [Concomitant]
     Indication: CARDIAC DISORDER
     Dosage: 10 MG, QD
     Route: 048
  7. CYCLOSPORINE [Concomitant]
     Indication: IMMUNOSUPPRESSANT DRUG THERAPY
     Dosage: 25 MG, TID
     Route: 048
  8. NIMODIPINE [Concomitant]
     Indication: PERIPHERAL VASCULAR DISORDER
     Dosage: 30 MG, BID
     Route: 048
  9. CUPRIMINE [Concomitant]
     Indication: IMMUNOSUPPRESSANT DRUG THERAPY
     Dosage: 250 MG, QD
     Route: 048
  10. RIVOTRIL [Concomitant]
     Indication: EPILEPSY
     Dosage: 3 OR 4 TIMES A DAY
     Route: 048
  11. LAMOTRIGINE [Concomitant]
     Indication: EPILEPSY
     Dosage: 25 MG, BID
     Route: 048
  12. ATENOLOL ^ALIUD PHARMA^ [Concomitant]
     Dosage: 25 MG, ONCE/SINGLE
     Route: 048

REACTIONS (9)
  - ABASIA [None]
  - BLOOD PRESSURE SYSTOLIC INCREASED [None]
  - DYSARTHRIA [None]
  - EPILEPSY [None]
  - HYPOKINESIA [None]
  - MONOPLEGIA [None]
  - SYNCOPE [None]
  - TONGUE DISORDER [None]
  - TREMOR [None]
